FAERS Safety Report 11312048 (Version 2)
Quarter: 2015Q3

REPORT INFORMATION
  Report Type: Report from Study
  Country: US (occurrence: US)
  Receive Date: 20150727
  Receipt Date: 20150802
  Transmission Date: 20151125
  Serious: Yes (Death, Other)
  Sender: FDA-Public Use
  Company Number: US-AMGEN-USASL2015073846

PATIENT
  Age: 32 Year
  Sex: Female

DRUGS (11)
  1. MEROPENEM. [Concomitant]
     Active Substance: MEROPENEM
     Indication: PANCYTOPENIA
  2. DOXORUBICIN                        /00330902/ [Concomitant]
     Active Substance: DOXORUBICIN
  3. VANCOMYCIN [Concomitant]
     Active Substance: VANCOMYCIN
     Indication: PANCYTOPENIA
  4. VANCOMYCIN [Concomitant]
     Active Substance: VANCOMYCIN
     Indication: PYREXIA
  5. CYCLOPHOSPHAMIDE. [Concomitant]
     Active Substance: CYCLOPHOSPHAMIDE
  6. VANCOMYCIN [Concomitant]
     Active Substance: VANCOMYCIN
     Indication: NEUTROPENIA
  7. BLINCYTO [Suspect]
     Active Substance: BLINATUMOMAB
     Indication: ACUTE LYMPHOCYTIC LEUKAEMIA RECURRENT
     Dosage: UNK UNK, UNK
     Route: 065
     Dates: start: 20150707
  8. VINCRISTINE [Concomitant]
     Active Substance: VINCRISTINE
  9. DEXAMETHASONE. [Concomitant]
     Active Substance: DEXAMETHASONE
  10. MEROPENEM. [Concomitant]
     Active Substance: MEROPENEM
     Indication: NEUTROPENIA
  11. MEROPENEM. [Concomitant]
     Active Substance: MEROPENEM
     Indication: PYREXIA

REACTIONS (4)
  - Sepsis [Unknown]
  - Multi-organ failure [Unknown]
  - Death [Fatal]
  - Hypophagia [Unknown]

NARRATIVE: CASE EVENT DATE: 201507
